FAERS Safety Report 14771532 (Version 2)
Quarter: 2019Q1

REPORT INFORMATION
  Report Type: Spontaneous
  Country: US (occurrence: US)
  Receive Date: 20180417
  Receipt Date: 20190325
  Transmission Date: 20190417
  Serious: No
  Sender: FDA-Public Use
  Company Number: US-ALLERGAN-1730341US

PATIENT
  Sex: Male

DRUGS (4)
  1. TIMOLOL. [Suspect]
     Active Substance: TIMOLOL
     Indication: GLAUCOMA
     Dosage: 2 GTT, QHS
     Route: 047
  2. LUMIGAN [Suspect]
     Active Substance: BIMATOPROST
     Dosage: 2 GTT, QHS
     Route: 047
  3. LUMIGAN [Suspect]
     Active Substance: BIMATOPROST
     Indication: GLAUCOMA
     Dosage: 2 GTT, QHS
     Route: 047
     Dates: start: 2005
  4. TIMOLOL. [Suspect]
     Active Substance: TIMOLOL
     Dosage: 1 GTT, UNK
     Route: 047

REACTIONS (4)
  - Eye irritation [Recovering/Resolving]
  - Drug ineffective [Not Recovered/Not Resolved]
  - Eye pruritus [Recovering/Resolving]
  - Eyelid margin crusting [Recovering/Resolving]
